FAERS Safety Report 4828554-1 (Version None)
Quarter: 2005Q4

REPORT INFORMATION
  Report Type: 
  Country: None (occurrence: None)
  Receive Date: 20051115
  Receipt Date: 20051101
  Transmission Date: 20060501
  Serious: Yes (Other)
  Sender: FDA-Public Use
  Company Number: PHMT2005CA00499

PATIENT
  Sex: Female

DRUGS (1)
  1. ZELNORM [Suspect]

REACTIONS (4)
  - ABDOMINAL DISCOMFORT [None]
  - CHOLELITHIASIS [None]
  - HYPERSENSITIVITY [None]
  - SURGERY [None]
